FAERS Safety Report 23874970 (Version 1)
Quarter: 2024Q2

REPORT INFORMATION
  Report Type: Spontaneous
  Country: US (occurrence: None)
  Receive Date: 20240520
  Receipt Date: 20240520
  Transmission Date: 20240716
  Serious: No
  Sender: FDA-Public Use
  Company Number: None

PATIENT
  Age: 10 Year
  Sex: Female
  Weight: 28.7 kg

DRUGS (1)
  1. LEVOTHYROXINE [Suspect]
     Active Substance: LEVOTHYROXINE\LEVOTHYROXINE SODIUM
     Indication: Autoimmune thyroiditis
     Dosage: 1/2 TABLET  56 MCG DAILY PO
     Route: 048
     Dates: start: 20211008, end: 20240506

REACTIONS (5)
  - Mood altered [None]
  - Behaviour disorder [None]
  - Dysphagia [None]
  - Rash [None]
  - Rash [None]

NARRATIVE: CASE EVENT DATE: 20240506
